FAERS Safety Report 11898615 (Version 1)
Quarter: 2016Q1

REPORT INFORMATION
  Report Type: Spontaneous
  Country: US (occurrence: None)
  Receive Date: 20160107
  Receipt Date: 20160107
  Transmission Date: 20160526
  Serious: Yes (Hospitalization)
  Sender: FDA-Public Use
  Company Number: None

PATIENT
  Age: 55 Year
  Sex: Female

DRUGS (5)
  1. PREDNISONE. [Concomitant]
     Active Substance: PREDNISONE
  2. METFORMIN [Concomitant]
     Active Substance: METFORMIN HYDROCHLORIDE
  3. ENBREL [Suspect]
     Active Substance: ETANERCEPT
     Indication: RHEUMATOID ARTHRITIS
     Dosage: INJECT UNDER THE SKIN
  4. DOCQLACE [Concomitant]
     Active Substance: DOCUSATE SODIUM
  5. ASPIRIN. [Concomitant]
     Active Substance: ASPIRIN

REACTIONS (2)
  - Lower limb fracture [None]
  - Upper limb fracture [None]

NARRATIVE: CASE EVENT DATE: 20151128
